FAERS Safety Report 5455583-X (Version None)
Quarter: 2007Q3

REPORT INFORMATION
  Report Type: 
  Country: None (occurrence: None)
  Receive Date: 20070918
  Receipt Date: 20070906
  Transmission Date: 20080115
  Serious: Yes (Other)
  Sender: FDA-Public Use
  Company Number: GB-AMGEN-US240000

PATIENT
  Sex: Male
  Weight: 63.64 kg

DRUGS (9)
  1. ENBREL [Suspect]
     Indication: RHEUMATOID ARTHRITIS
     Route: 058
     Dates: start: 20070522, end: 20070624
  2. ASPIRIN [Concomitant]
     Indication: PROPHYLAXIS
     Route: 048
  3. PREDNISOLONE [Concomitant]
     Indication: RHEUMATOID ARTHRITIS
     Route: 065
  4. ALENDRONIC ACID [Concomitant]
     Indication: PROPHYLAXIS
     Route: 065
  5. AMITRIPTYLINE HYDROCHLORIDE [Concomitant]
     Indication: ANALGESIA
     Route: 065
  6. ATENOLOL [Concomitant]
     Indication: HYPERTENSION
     Route: 065
  7. PARACETAMOL [Concomitant]
     Indication: ANALGESIA
     Dosage: 500MG, PRN
     Route: 065
  8. CANDESARTAN CILEXETIL [Concomitant]
     Indication: HYPERTENSION
     Route: 048
  9. OMEPRAZOLE [Concomitant]
     Indication: PROPHYLAXIS AGAINST GASTROINTESTINAL ULCER
     Route: 065

REACTIONS (2)
  - HEADACHE [None]
  - VISUAL ACUITY REDUCED [None]
